FAERS Safety Report 9784949 (Version 2)
Quarter: 2013Q4

REPORT INFORMATION
  Report Type: Spontaneous
  Country: US (occurrence: US)
  Receive Date: 20131227
  Receipt Date: 20131227
  Transmission Date: 20140711
  Serious: Yes (Disabling, Other)
  Sender: FDA-Public Use
  Company Number: US-ASTRAZENECA-2011SE05346

PATIENT
  Age: 62 Year
  Sex: Female
  Weight: 70.3 kg

DRUGS (11)
  1. NEXIUM [Suspect]
     Indication: GASTROOESOPHAGEAL REFLUX DISEASE
     Route: 048
     Dates: start: 2001, end: 20131218
  2. NEXIUM [Suspect]
     Indication: GASTROOESOPHAGEAL REFLUX DISEASE
     Route: 048
  3. SEROQUEL [Suspect]
     Indication: ANXIETY
     Route: 048
  4. SEROQUEL [Suspect]
     Indication: PANIC ATTACK
     Route: 048
  5. LISINOPRIL-HCTZ [Suspect]
     Indication: BLOOD PRESSURE ABNORMAL
     Dosage: 40MG-25MG
     Route: 048
     Dates: start: 201209
  6. COREG [Concomitant]
     Indication: CARDIAC DISORDER
     Route: 048
  7. LEVOTHYROXINE [Concomitant]
     Indication: THYROID DISORDER
     Route: 048
     Dates: start: 1993
  8. BUSPAR [Concomitant]
     Indication: ANXIETY
     Route: 048
     Dates: start: 201306
  9. GEMFIBROZIL [Concomitant]
     Indication: ANXIETY
     Route: 048
     Dates: start: 2010
  10. XANAX [Concomitant]
     Indication: SLEEP DISORDER
     Route: 048
     Dates: start: 2002
  11. XANAX [Concomitant]
     Indication: PANIC ATTACK
     Route: 048
     Dates: start: 2002

REACTIONS (10)
  - Cardiomyopathy [Not Recovered/Not Resolved]
  - Tachycardia [Recovered/Resolved]
  - Cholelithiasis [Recovered/Resolved]
  - Activities of daily living impaired [Not Recovered/Not Resolved]
  - Gastrooesophageal reflux disease [Not Recovered/Not Resolved]
  - Abdominal discomfort [Not Recovered/Not Resolved]
  - Eating disorder [Unknown]
  - Insomnia [Unknown]
  - Intentional drug misuse [Unknown]
  - Drug dose omission [Unknown]
